FAERS Safety Report 12273646 (Version 3)
Quarter: 2016Q2

REPORT INFORMATION
  Report Type: Spontaneous
  Country: US (occurrence: US)
  Receive Date: 20160415
  Receipt Date: 20160601
  Transmission Date: 20160815
  Serious: Yes (Other)
  Sender: FDA-Public Use
  Company Number: US-B.I. PHARMACEUTICALS,INC./RIDGEFIELD-2016-BI-22704BP

PATIENT
  Sex: Female
  Weight: 2.67 kg

DRUGS (2)
  1. NEVIRAPINE. [Suspect]
     Active Substance: NEVIRAPINE
     Indication: HIV INFECTION
     Dosage: 200 MG
     Route: 065
  2. TENOFOVIR DISOPROXIL FUMARATE+EMTRICITABINE [Concomitant]
     Active Substance: EMTRICITABINE\TENOFOVIR DISOPROXIL FUMARATE
     Indication: HIV INFECTION
     Dosage: 1 ANZ
     Route: 064

REACTIONS (2)
  - Trisomy 21 [Unknown]
  - Atrial septal defect [Unknown]
